FAERS Safety Report 9643809 (Version 1)
Quarter: 2013Q4

REPORT INFORMATION
  Report Type: Spontaneous
  Country: US (occurrence: US)
  Receive Date: 20131024
  Receipt Date: 20131024
  Transmission Date: 20140711
  Serious: Yes (Other)
  Sender: FDA-Public Use
  Company Number: CHPA2013US015806

PATIENT
  Age: 18 Year
  Sex: Female

DRUGS (3)
  1. THERAFLU NIGHTTIME SEVERE COLD WARMING SYRUP [Suspect]
     Indication: COUGH
     Dosage: UNK, UNK
     Route: 048
     Dates: start: 20131015
  2. THERAFLU NIGHTTIME SEVERE COLD WARMING SYRUP [Suspect]
     Indication: OROPHARYNGEAL PAIN
  3. THERAFLU NIGHTTIME SEVERE COLD WARMING SYRUP [Suspect]
     Indication: PYREXIA

REACTIONS (8)
  - Pharyngeal oedema [Not Recovered/Not Resolved]
  - Dysphagia [Not Recovered/Not Resolved]
  - Dyspnoea [Not Recovered/Not Resolved]
  - Insomnia [Recovered/Resolved]
  - Epistaxis [Recovered/Resolved]
  - Feeling abnormal [Recovered/Resolved]
  - Chest pain [Recovered/Resolved]
  - Choking sensation [Not Recovered/Not Resolved]
